FAERS Safety Report 26163151 (Version 1)
Quarter: 2025Q4

REPORT INFORMATION
  Report Type: Report from Study
  Country: US (occurrence: US)
  Receive Date: 20251216
  Receipt Date: 20251216
  Transmission Date: 20260118
  Serious: Yes (Life-Threatening, Hospitalization, Other)
  Sender: RANBAXY
  Company Number: US-SUN PHARMACEUTICAL INDUSTRIES LTD-2025R1-533283

PATIENT
  Age: 68 Year
  Sex: Male

DRUGS (9)
  1. RIVAROXABAN [Suspect]
     Active Substance: RIVAROXABAN
     Indication: Atrial fibrillation
     Dosage: 20 MILLIGRAM, DAILY
     Route: 048
  2. RIVAROXABAN [Suspect]
     Active Substance: RIVAROXABAN
     Indication: Chronic kidney disease
  3. RIVAROXABAN [Suspect]
     Active Substance: RIVAROXABAN
     Indication: Ischaemic stroke
  4. ASPIRIN [Concomitant]
     Active Substance: ASPIRIN
     Indication: Atrial fibrillation
     Dosage: 81 MILLIGRAM, DAILY
     Route: 065
  5. ASPIRIN [Concomitant]
     Active Substance: ASPIRIN
     Indication: Chronic kidney disease
  6. ASPIRIN [Concomitant]
     Active Substance: ASPIRIN
     Indication: Ischaemic stroke
  7. DRONEDARONE [Concomitant]
     Active Substance: DRONEDARONE
     Indication: Atrial fibrillation
     Dosage: 400 MILLIGRAM, BID
     Route: 065
  8. DRONEDARONE [Concomitant]
     Active Substance: DRONEDARONE
     Indication: Chronic kidney disease
  9. DRONEDARONE [Concomitant]
     Active Substance: DRONEDARONE
     Indication: Ischaemic stroke

REACTIONS (2)
  - Brain oedema [Unknown]
  - Cerebellar haemorrhage [Unknown]
